FAERS Safety Report 9391593 (Version 1)
Quarter: 2013Q3

REPORT INFORMATION
  Report Type: Spontaneous
  Country: US (occurrence: US)
  Receive Date: 20130709
  Receipt Date: 20130709
  Transmission Date: 20140515
  Serious: Yes (Other)
  Sender: FDA-Public Use
  Company Number: US-GLAXOSMITHKLINE-A0806195A

PATIENT
  Age: 41 Year
  Sex: Male
  Weight: 84.5 kg

DRUGS (1)
  1. AVANDIA [Suspect]
     Indication: DIABETES MELLITUS
     Route: 048
     Dates: start: 19991219

REACTIONS (3)
  - Hepatic failure [Unknown]
  - Cardiac failure congestive [Unknown]
  - Macular oedema [Unknown]
